FAERS Safety Report 6291084-7 (Version None)
Quarter: 2009Q3

REPORT INFORMATION
  Report Type: 
  Country: None (occurrence: None)
  Receive Date: 20090730
  Receipt Date: 20090721
  Transmission Date: 20100115
  Serious: Yes (Hospitalization)
  Sender: FDA-Public Use
  Company Number: A0785364A

PATIENT
  Age: 76 Year
  Sex: Male

DRUGS (2)
  1. AVANDIA [Suspect]
     Indication: DIABETES MELLITUS
     Dosage: 4MG PER DAY
     Route: 065
     Dates: start: 20020301, end: 20080901
  2. ROSIGLITAZONE MALEATE [Suspect]
     Indication: DIABETES MELLITUS

REACTIONS (2)
  - DECREASED ACTIVITY [None]
  - MYOCARDIAL INFARCTION [None]
